FAERS Safety Report 6186105-6 (Version None)
Quarter: 2009Q2

REPORT INFORMATION
  Report Type: 
  Country: None (occurrence: None)
  Receive Date: 20090507
  Receipt Date: 20090507
  Transmission Date: 20091009
  Serious: No
  Sender: FDA-Public Use
  Company Number: None

PATIENT
  Age: 8 Month
  Sex: Female
  Weight: 5.7 kg

DRUGS (27)
  1. CATAPRES [Suspect]
     Indication: HYPERTENSION
     Dosage: 0.1 MG/24 HOURS QWEEK TRANSDERMAL
     Route: 062
     Dates: start: 20090419, end: 20090424
  2. CATAPRES [Suspect]
     Indication: HYPERTENSION
     Dosage: 0.3MG/24 HOURS QWEEK TRANSDERMAL
     Route: 062
     Dates: start: 20090424, end: 20090506
  3. ACYCLOVIR [Concomitant]
  4. CHLOROTHIAZIDE [Concomitant]
  5. CYCLOSPORINE [Concomitant]
  6. ENALAPRIL [Concomitant]
  7. FUROSEMIDE [Concomitant]
  8. GLYCOPYRROLATE [Concomitant]
  9. HYDROCORTISONE [Concomitant]
  10. MEROPENEM [Concomitant]
  11. METHADONE HCL [Concomitant]
  12. MICAFUNGIN [Concomitant]
  13. NYSTATIN [Concomitant]
  14. ONDANSETRON [Concomitant]
  15. PANTOPRAZOLE SODIUM [Concomitant]
  16. PENTAMIDINE ISETHIONATE [Concomitant]
  17. ILEX CREAM [Concomitant]
  18. SODIUM CHLORIDE [Concomitant]
  19. VANCOMYCIN [Concomitant]
  20. DIPHENHYDRAMINE HCL [Concomitant]
  21. HYDRALAZINE HCL [Concomitant]
  22. HYDROMORPHONE HCL [Concomitant]
  23. DEXTROSE [Concomitant]
  24. DEXEMEDTOMIDINE [Concomitant]
  25. HEPARIN [Concomitant]
  26. HYDROMORPHONE HCL [Concomitant]
  27. LORAZEPAM [Concomitant]

REACTIONS (1)
  - APPLICATION SITE DISCOLOURATION [None]
